FAERS Safety Report 6722356-7 (Version None)
Quarter: 2010Q2

REPORT INFORMATION
  Report Type: 
  Country: None (occurrence: None)
  Receive Date: 20100512
  Receipt Date: 20100504
  Transmission Date: 20101027
  Serious: Yes (Other)
  Sender: FDA-Public Use
  Company Number: US-SANOFI-AVENTIS-2010SA027041

PATIENT
  Sex: Male

DRUGS (3)
  1. SOLOSTAR [Suspect]
     Indication: TYPE 2 DIABETES MELLITUS
     Dates: start: 20090101
  2. LANTUS [Suspect]
     Indication: TYPE 2 DIABETES MELLITUS
     Dosage: DOSE:22 UNIT(S)
     Route: 058
  3. LANTUS [Suspect]
     Route: 058
     Dates: start: 20090101

REACTIONS (4)
  - BLOOD GLUCOSE INCREASED [None]
  - LUNG NEOPLASM MALIGNANT [None]
  - LYMPHOMA [None]
  - MEDICATION ERROR [None]
